FAERS Safety Report 14991354 (Version 1)
Quarter: 2018Q2

REPORT INFORMATION
  Report Type: Spontaneous
  Country: US (occurrence: US)
  Receive Date: 20180608
  Receipt Date: 20180608
  Transmission Date: 20180711
  Serious: No
  Sender: FDA-Public Use
  Company Number: US-GLAXOSMITHKLINE-US2018097252

PATIENT
  Age: 66 Year
  Sex: Female

DRUGS (1)
  1. FLONASE SENSIMIST ALLERGY RELIEF [Suspect]
     Active Substance: FLUTICASONE FUROATE
     Indication: NASAL CONGESTION
     Dosage: UNK, HUMONGOUS AMOUNT
     Route: 045
     Dates: start: 20180523, end: 20180523

REACTIONS (7)
  - Blood sodium decreased [Not Recovered/Not Resolved]
  - Asthenia [Not Recovered/Not Resolved]
  - Rhinalgia [Not Recovered/Not Resolved]
  - Wrong technique in product usage process [Unknown]
  - Accidental overdose [Unknown]
  - Dry eye [Not Recovered/Not Resolved]
  - Emergency care examination [Unknown]

NARRATIVE: CASE EVENT DATE: 20180523
